FAERS Safety Report 20313590 (Version 1)
Quarter: 2022Q1

REPORT INFORMATION
  Report Type: Spontaneous
  Country: US (occurrence: US)
  Receive Date: 20220109
  Receipt Date: 20220109
  Transmission Date: 20220423
  Serious: No
  Sender: FDA-Public Use
  Company Number: US-SA-SAC20211231000775

PATIENT
  Age: 39 Year
  Sex: Female

DRUGS (1)
  1. DUPIXENT [Suspect]
     Active Substance: DUPILUMAB
     Indication: Illness
     Dosage: 300 MG,QOW
     Route: 058

REACTIONS (4)
  - Injection site pruritus [Unknown]
  - Injection site pain [Unknown]
  - Injection site warmth [Unknown]
  - Product use in unapproved indication [Unknown]
